FAERS Safety Report 11158557 (Version 1)
Quarter: 2015Q2

REPORT INFORMATION
  Report Type: Spontaneous
  Country: GB (occurrence: GB)
  Receive Date: 20150603
  Receipt Date: 20150603
  Transmission Date: 20150821
  Serious: Yes (Hospitalization, Other)
  Sender: FDA-Public Use
  Company Number: GB-BANPHARM-20153938

PATIENT
  Age: 63 Year
  Sex: Female
  Weight: 70 kg

DRUGS (8)
  1. IBUPROFEN UNKNOWN PRODUCT [Suspect]
     Active Substance: IBUPROFEN
     Dosage: 800 MG,
     Route: 048
  2. DIAZEPAM. [Concomitant]
     Active Substance: DIAZEPAM
  3. OMEPRAZOL [Concomitant]
     Active Substance: OMEPRAZOLE
  4. DICLOFENAC [Suspect]
     Active Substance: DICLOFENAC
     Dosage: 75 MG, BID,
     Route: 048
  5. LISINOPRIL. [Concomitant]
     Active Substance: LISINOPRIL
  6. ORAMORPH SR SUSTAINED RELEASE [Concomitant]
     Active Substance: MORPHINE SULFATE
  7. SIMVASTATIN. [Concomitant]
     Active Substance: SIMVASTATIN
  8. COCODAMOL [Concomitant]
     Active Substance: ACETAMINOPHEN\CODEINE PHOSPHATE

REACTIONS (2)
  - Contraindicated drug administered [Unknown]
  - Acute kidney injury [Recovering/Resolving]
